FAERS Safety Report 4827760-X (Version None)
Quarter: 2005Q4

REPORT INFORMATION
  Report Type: 
  Country: None (occurrence: None)
  Receive Date: 20051110
  Receipt Date: 20051028
  Transmission Date: 20060501
  Serious: Yes (Death)
  Sender: FDA-Public Use
  Company Number: A-05-008-M

PATIENT
  Age: 44 Year
  Sex: Male
  Weight: 130 kg

DRUGS (2)
  1. ANTIZOL (FOMEPIZOLE) INJECTION [Suspect]
     Indication: ALCOHOL POISONING
     Dosage: IV
     Route: 042
     Dates: start: 20051026
  2. ETHANOL [Suspect]
     Indication: ALCOHOL POISONING
     Dosage: IV
     Route: 042
     Dates: start: 20051026

REACTIONS (5)
  - CYANOSIS [None]
  - DIALYSIS [None]
  - HYPOTENSION [None]
  - PHARYNGEAL OEDEMA [None]
  - RESPIRATORY DISTRESS [None]
